FAERS Safety Report 8974371 (Version 1)
Quarter: 2012Q4

REPORT INFORMATION
  Report Type: Report from Study
  Country: CN (occurrence: CN)
  Receive Date: 20121220
  Receipt Date: 20121220
  Transmission Date: 20130627
  Serious: Yes (Death)
  Sender: FDA-Public Use
  Company Number: CN-ASTELLAS-2012JP011813

PATIENT
  Age: 30 Year
  Sex: Male

DRUGS (3)
  1. TACROLIMUS CAPSULES [Suspect]
     Indication: RENAL TRANSPLANT
     Dosage: 3.5 mg, bid
     Route: 048
     Dates: start: 20120501
  2. MEDROL                             /00049601/ [Concomitant]
     Route: 048
  3. CELLCEPT                           /01275102/ [Concomitant]
     Route: 065

REACTIONS (1)
  - Death [Fatal]
